FAERS Safety Report 4636228-5 (Version None)
Quarter: 2005Q2

REPORT INFORMATION
  Report Type: 
  Country: None (occurrence: None)
  Receive Date: 20050413
  Receipt Date: 20050413
  Transmission Date: 20051028
  Serious: Yes (Other)
  Sender: FDA-Public Use
  Company Number: None

PATIENT
  Age: 80 Year
  Sex: Female
  Weight: 63.5036 kg

DRUGS (1)
  1. NEURONTIN [Suspect]
     Indication: SCHIZOAFFECTIVE DISORDER
     Dosage: PO 2 Q DAY
     Route: 048

REACTIONS (3)
  - DRUG EFFECT DECREASED [None]
  - MOOD ALTERED [None]
  - PHARMACEUTICAL PRODUCT COMPLAINT [None]
